FAERS Safety Report 10163563 (Version 4)
Quarter: 2016Q3

REPORT INFORMATION
  Report Type: Report from Study
  Country: US (occurrence: US)
  Receive Date: 20140509
  Receipt Date: 20160808
  Transmission Date: 20161108
  Serious: Yes (Life-Threatening, Hospitalization)
  Sender: FDA-Public Use
  Company Number: US-EXELIXIS-XL18414004260

PATIENT
  Age: 63 Year
  Sex: Male
  Weight: 61.5 kg

DRUGS (13)
  1. BENICAR [Concomitant]
     Active Substance: OLMESARTAN MEDOXOMIL
  2. VITAMIN D [Concomitant]
     Active Substance: CHOLECALCIFEROL
  3. BLUMEA BALSAMIFERA TEA [Concomitant]
  4. ACTIVE CALCIUM [Concomitant]
  5. COQUINONE [Concomitant]
  6. CHELATED MINERAL [Concomitant]
  7. PROFLAVANOL C 100 [Concomitant]
  8. HEPASIL DTX [Concomitant]
  9. SOURSOP TEA [Concomitant]
  10. XL184 [Suspect]
     Active Substance: CABOZANTINIB
     Indication: HEPATOCELLULAR CARCINOMA
     Dosage: 60 MG, QD
     Route: 048
     Dates: start: 20140422, end: 20140429
  11. METOPROLOL SUCCER [Concomitant]
  12. PANTOPRAZOLE SODIUM. [Concomitant]
     Active Substance: PANTOPRAZOLE SODIUM
  13. TRAMADOL HCL [Concomitant]
     Active Substance: TRAMADOL HYDROCHLORIDE

REACTIONS (4)
  - Asthenia [Not Recovered/Not Resolved]
  - Pyrexia [Recovered/Resolved]
  - Failure to thrive [Not Recovered/Not Resolved]
  - Myalgia [Recovered/Resolved]

NARRATIVE: CASE EVENT DATE: 20140503
